FAERS Safety Report 13075217 (Version 1)
Quarter: 2016Q4

REPORT INFORMATION
  Report Type: Report from Study
  Country: CN (occurrence: CN)
  Receive Date: 20161230
  Receipt Date: 20161230
  Transmission Date: 20170207
  Serious: Yes (Death, Other)
  Sender: FDA-Public Use
  Company Number: CN-ASTELLAS-2016US051042

PATIENT
  Sex: Female

DRUGS (2)
  1. ERLOTINIB [Suspect]
     Active Substance: ERLOTINIB
     Indication: NON-SMALL CELL LUNG CANCER
     Route: 048
     Dates: start: 20130228
  2. ERLOTINIB [Suspect]
     Active Substance: ERLOTINIB
     Dosage: 150 MG, ONCE PER DAY FOR 6 DAYS AND STOPPED FOR ONE DAY
     Route: 048

REACTIONS (7)
  - Inappropriate schedule of drug administration [Unknown]
  - Respiratory failure [Fatal]
  - Asthenia [Unknown]
  - Nasopharyngitis [Unknown]
  - Cough [Unknown]
  - Rash erythematous [Unknown]
  - Lymphadenopathy [Not Recovered/Not Resolved]
